FAERS Safety Report 18899932 (Version 2)
Quarter: 2021Q1

REPORT INFORMATION
  Report Type: Spontaneous
  Country: US (occurrence: US)
  Receive Date: 20210216
  Receipt Date: 20210304
  Transmission Date: 20210420
  Serious: No
  Sender: FDA-Public Use
  Company Number: US-ELI_LILLY_AND_COMPANY-US202102007346

PATIENT

DRUGS (1)
  1. AMYVID [Suspect]
     Active Substance: FLORBETAPIR F-18
     Indication: SCAN
     Dosage: 10 MCI, UNKNOWN
     Route: 065
     Dates: start: 20201210

REACTIONS (1)
  - Rash [Unknown]

NARRATIVE: CASE EVENT DATE: 202012
